FAERS Safety Report 18560970 (Version 1)
Quarter: 2020Q4

REPORT INFORMATION
  Report Type: Report from Study
  Country: US (occurrence: US)
  Receive Date: 20201130
  Receipt Date: 20201130
  Transmission Date: 20210114
  Serious: Yes (Hospitalization, Other)
  Sender: FDA-Public Use
  Company Number: US-BAYER-2020-252401

PATIENT
  Sex: Male

DRUGS (17)
  1. JANUVIA [Suspect]
     Active Substance: SITAGLIPTIN PHOSPHATE
  2. ENZALUTAMIDE [Suspect]
     Active Substance: ENZALUTAMIDE
     Indication: PROSTATE CANCER
     Dosage: 160 MG, QD
     Route: 048
  3. COREG [Suspect]
     Active Substance: CARVEDILOL
  4. METFORMIN [Suspect]
     Active Substance: METFORMIN HYDROCHLORIDE
  5. ASPIRIN. [Suspect]
     Active Substance: ASPIRIN
  6. SIMVASTATIN. [Suspect]
     Active Substance: SIMVASTATIN
  7. KLOR-CON [Suspect]
     Active Substance: POTASSIUM CHLORIDE
  8. ACARBOSE. [Suspect]
     Active Substance: ACARBOSE
  9. FUROSEMIDE. [Suspect]
     Active Substance: FUROSEMIDE
  10. SPIRONOLACTONE. [Suspect]
     Active Substance: SPIRONOLACTONE
  11. BICALUTAMIDE. [Suspect]
     Active Substance: BICALUTAMIDE
  12. GLIPIZIDE. [Suspect]
     Active Substance: GLIPIZIDE
  13. PREDNISONE. [Suspect]
     Active Substance: PREDNISONE
  14. SOTALOL. [Suspect]
     Active Substance: SOTALOL
  15. LISINOPRIL. [Suspect]
     Active Substance: LISINOPRIL
  16. ASCORBIC ACID. [Suspect]
     Active Substance: ASCORBIC ACID
  17. DULCOLAX (BISACODYL) [Suspect]
     Active Substance: BISACODYL

REACTIONS (3)
  - Gastric disorder [Not Recovered/Not Resolved]
  - Cardiac failure congestive [Not Recovered/Not Resolved]
  - Constipation [Not Recovered/Not Resolved]
